FAERS Safety Report 4648337-5 (Version None)
Quarter: 2005Q2

REPORT INFORMATION
  Report Type: 
  Country: None (occurrence: None)
  Receive Date: 20050427
  Receipt Date: 20050418
  Transmission Date: 20051028
  Serious: Yes (Hospitalization, Other)
  Sender: FDA-Public Use
  Company Number: HQWYE109819APR05

PATIENT
  Age: 62 Year
  Sex: Male

DRUGS (6)
  1. CORDARONE [Suspect]
     Indication: ATRIAL FIBRILLATION
     Dosage: 400 MG 1X PER 1 DAY, ORAL
     Route: 048
     Dates: start: 19970101, end: 19980201
  2. CORDARONE [Suspect]
     Indication: ATRIAL FLUTTER
     Dosage: 400 MG 1X PER 1 DAY, ORAL
     Route: 048
     Dates: start: 19970101, end: 19980201
  3. PRAVASTATIN [Concomitant]
  4. CELIPROLOL (CELIPROLOL) [Concomitant]
  5. LISINOPRIL [Concomitant]
  6. FRUSEMIDE (FUROSEMIDE0 [Concomitant]

REACTIONS (4)
  - ANAEMIA [None]
  - HEPATIC FUNCTION ABNORMAL [None]
  - PULMONARY FIBROSIS [None]
  - PYREXIA [None]
